FAERS Safety Report 21856287 (Version 3)
Quarter: 2023Q1

REPORT INFORMATION
  Report Type: Report from Study
  Country: FR (occurrence: FR)
  Receive Date: 20230112
  Receipt Date: 20230210
  Transmission Date: 20230418
  Serious: Yes (Death, Hospitalization)
  Sender: FDA-Public Use
  Company Number: FR-EVEREST MEDICINES II (HK) LIMITED-2023-0612291

PATIENT
  Sex: Female
  Weight: 51 kg

DRUGS (2)
  1. SACITUZUMAB GOVITECAN-HZIY [Suspect]
     Active Substance: SACITUZUMAB GOVITECAN-HZIY
     Indication: Triple negative breast cancer
     Dosage: 10 MG/KG, CYCLE 1; D1, D8
     Route: 042
     Dates: start: 20211229, end: 20220105
  2. SACITUZUMAB GOVITECAN-HZIY [Suspect]
     Active Substance: SACITUZUMAB GOVITECAN-HZIY
     Dosage: 10 MG/KG, CYCLE 1; D1,
     Route: 042
     Dates: start: 20220124, end: 20220127

REACTIONS (4)
  - Haematotoxicity [Fatal]
  - Dyspnoea [Unknown]
  - Neoplasm progression [Unknown]
  - Off label use [Unknown]
